FAERS Safety Report 6250079-X (Version None)
Quarter: 2009Q2

REPORT INFORMATION
  Report Type: 
  Country: None (occurrence: None)
  Receive Date: 20090629
  Receipt Date: 20090616
  Transmission Date: 20091009
  Serious: Yes (Other)
  Sender: FDA-Public Use
  Company Number: NL-AMGEN-US352484

PATIENT
  Age: 14 Year
  Sex: Female

DRUGS (6)
  1. ENBREL [Suspect]
     Indication: DRUG USE FOR UNKNOWN INDICATION
     Route: 058
     Dates: start: 20090612
  2. PREDNISOLONE [Concomitant]
     Route: 065
  3. NAPROXEN [Concomitant]
     Route: 065
  4. FOLIC ACID [Concomitant]
     Route: 065
  5. OMEPRAZOLE [Concomitant]
     Route: 065
  6. METHOTREXATE [Concomitant]
     Route: 065

REACTIONS (2)
  - BACK PAIN [None]
  - SYNCOPE [None]
